FAERS Safety Report 7470184-X (Version None)
Quarter: 2011Q2

REPORT INFORMATION
  Report Type: 
  Country: None (occurrence: None)
  Receive Date: 20110510
  Receipt Date: 20110505
  Transmission Date: 20111010
  Serious: Yes (Other)
  Sender: FDA-Public Use
  Company Number: B0718062A

PATIENT
  Sex: Male

DRUGS (3)
  1. ZYBAN [Suspect]
     Indication: SMOKING CESSATION THERAPY
     Route: 065
  2. UNKNOWN MEDICATION [Concomitant]
  3. BEER [Concomitant]

REACTIONS (5)
  - DEHYDRATION [None]
  - CONFUSIONAL STATE [None]
  - RENAL FAILURE [None]
  - HYPERHIDROSIS [None]
  - DIZZINESS [None]
